FAERS Safety Report 25338190 (Version 1)
Quarter: 2025Q2

REPORT INFORMATION
  Report Type: Spontaneous
  Country: US (occurrence: US)
  Receive Date: 20250520
  Receipt Date: 20250520
  Transmission Date: 20250717
  Serious: No
  Sender: Thea Pharma
  Company Number: US-THEA-2025000308

PATIENT
  Age: 74 Year
  Sex: Female

DRUGS (2)
  1. COSOPT [Suspect]
     Active Substance: DORZOLAMIDE HYDROCHLORIDE\TIMOLOL MALEATE
     Indication: Glaucoma
     Dosage: BOTH EYES
     Route: 047
     Dates: start: 2022
  2. COSOPT [Suspect]
     Active Substance: DORZOLAMIDE HYDROCHLORIDE\TIMOLOL MALEATE
     Indication: Glaucoma
     Dosage: BOTH EYES
     Route: 047
     Dates: start: 20241220

REACTIONS (5)
  - Drug ineffective [Unknown]
  - Product complaint [Unknown]
  - Visual impairment [Not Recovered/Not Resolved]
  - Intraocular pressure increased [Recovered/Resolved]
  - Vision blurred [Not Recovered/Not Resolved]

NARRATIVE: CASE EVENT DATE: 20241220
